FAERS Safety Report 4828331-1 (Version None)
Quarter: 2005Q4

REPORT INFORMATION
  Report Type: 
  Country: None (occurrence: None)
  Receive Date: 20051115
  Receipt Date: 20051114
  Transmission Date: 20060501
  Serious: Yes (Death, Life-Threatening, Hospitalization)
  Sender: FDA-Public Use
  Company Number: FR-SANOFI-SYNTHELABO-F01200502417

PATIENT
  Sex: Male

DRUGS (4)
  1. OXALIPLATIN [Suspect]
     Indication: COLORECTAL CANCER
     Dosage: 150 MG 1 X PER 2 WEEK
  2. BEVACIZUMAB [Suspect]
     Indication: COLORECTAL CANCER
     Dosage: 375 MG 1 X PER 14 DAY
     Dates: start: 20050726
  3. FLUOROURACIL [Suspect]
     Indication: COLORECTAL CANCER
     Dosage: 3500 MG 1 X PER 14 DAY
     Dates: start: 20050726
  4. CALCIUM LEVOFOLINATE [Suspect]
     Indication: COLORECTAL CANCER
     Dosage: 380 MG
     Dates: start: 20050726

REACTIONS (4)
  - CELLULITIS [None]
  - SEPSIS [None]
  - SKIN INFECTION [None]
  - ULCER [None]
